FAERS Safety Report 12573311 (Version 1)
Quarter: 2016Q3

REPORT INFORMATION
  Report Type: Spontaneous
  Country: US (occurrence: None)
  Receive Date: 20160719
  Receipt Date: 20160719
  Transmission Date: 20161109
  Serious: Yes (Other)
  Sender: FDA-Public Use
  Company Number: None

PATIENT
  Age: 62 Year
  Sex: Female
  Weight: 92.99 kg

DRUGS (11)
  1. HYDROXYCHLOROQUINE [Concomitant]
     Active Substance: HYDROXYCHLOROQUINE
  2. ZETIA [Concomitant]
     Active Substance: EZETIMIBE
  3. PRAVASTATIN. [Concomitant]
     Active Substance: PRAVASTATIN
  4. VITAMIN D [Concomitant]
     Active Substance: CHOLECALCIFEROL
  5. FLONASE [Suspect]
     Active Substance: FLUTICASONE PROPIONATE
     Indication: PULMONARY CONGESTION
     Dosage: 1 SPAY(S) ONCE A DAY INHALATION
     Route: 055
  6. MAGNESIUM [Concomitant]
     Active Substance: MAGNESIUM
  7. BENICAR [Concomitant]
     Active Substance: OLMESARTAN MEDOXOMIL
  8. CPAP [Concomitant]
     Active Substance: DEVICE
  9. FISH OIL [Concomitant]
     Active Substance: FISH OIL
  10. LUTEIN/ZEANTHRAIN [Concomitant]
  11. COQ10 [Concomitant]
     Active Substance: UBIDECARENONE

REACTIONS (5)
  - Asthenia [None]
  - Influenza like illness [None]
  - Pyrexia [None]
  - Respiratory disorder [None]
  - Pain [None]
